FAERS Safety Report 4830044-7 (Version None)
Quarter: 2005Q4

REPORT INFORMATION
  Report Type: 
  Country: None (occurrence: None)
  Receive Date: 20051115
  Receipt Date: 20051115
  Transmission Date: 20060501
  Serious: Yes (Hospitalization)
  Sender: FDA-Public Use
  Company Number: None

PATIENT
  Age: 62 Year
  Sex: Male
  Weight: 75.2971 kg

DRUGS (1)
  1. BUMEX [Suspect]
     Indication: CARDIAC FAILURE CONGESTIVE
     Dosage: 4MG  BID PO
     Route: 048
     Dates: start: 20050818, end: 20050901

REACTIONS (8)
  - ASTHENIA [None]
  - BLISTER [None]
  - DERMATITIS EXFOLIATIVE [None]
  - OEDEMA PERIPHERAL [None]
  - RASH ERYTHEMATOUS [None]
  - SKIN ULCER [None]
  - STEVENS-JOHNSON SYNDROME [None]
  - WOUND SECRETION [None]
